FAERS Safety Report 20041886 (Version 6)
Quarter: 2022Q1

REPORT INFORMATION
  Report Type: Report from Study
  Country: CA (occurrence: CA)
  Receive Date: 20211108
  Receipt Date: 20220130
  Transmission Date: 20220423
  Serious: Yes (Other)
  Sender: FDA-Public Use
  Company Number: CA-UCBSA-2021051352

PATIENT
  Age: 64 Year
  Sex: Female

DRUGS (5)
  1. CERTOLIZUMAB PEGOL [Suspect]
     Active Substance: CERTOLIZUMAB PEGOL
     Indication: Ankylosing spondylitis
     Dosage: 400 MILLIGRAM, EV 2 WEEKS(QOW)
     Route: 058
     Dates: start: 20211020
  2. CERTOLIZUMAB PEGOL [Suspect]
     Active Substance: CERTOLIZUMAB PEGOL
     Dosage: 400 MILLIGRAM, MONTHLY (QM)
     Route: 058
  3. PREDNISONE [Concomitant]
     Active Substance: PREDNISONE
     Indication: Nodule
     Dosage: UNK
     Dates: start: 2021
  4. CEFADROXIL [CEFADROXIL MONOHYDRATE] [Concomitant]
     Indication: Nodule
     Dosage: 1000 MILLIGRAM, 2X/DAY (BID)FOR 10DAYS
     Dates: start: 20211101
  5. COVID-19 VACCINE [Concomitant]
     Indication: COVID-19 immunisation

REACTIONS (9)
  - Eye haemorrhage [Recovering/Resolving]
  - Pneumonitis [Unknown]
  - Implant site inflammation [Unknown]
  - Nodule [Not Recovered/Not Resolved]
  - Hypoaesthesia [Unknown]
  - COVID-19 [Recovered/Resolved]
  - Diarrhoea [Unknown]
  - Therapeutic product effect incomplete [Unknown]
  - COVID-19 immunisation [Unknown]

NARRATIVE: CASE EVENT DATE: 20211001
